FAERS Safety Report 7390527-5 (Version None)
Quarter: 2011Q2

REPORT INFORMATION
  Report Type: 
  Country: None (occurrence: None)
  Receive Date: 20110403
  Receipt Date: 20110316
  Transmission Date: 20111010
  Serious: No
  Sender: FDA-Public Use
  Company Number: US-B.I. PHARMACEUTICALS,INC./RIDGEFIELD-2011-BP-02593BP

PATIENT
  Sex: Male

DRUGS (11)
  1. SPIRIVA [Suspect]
     Indication: CHRONIC OBSTRUCTIVE PULMONARY DISEASE
  2. FLOMAX [Concomitant]
     Indication: PROSTATIC DISORDER
     Dates: start: 20090101
  3. PROSCAR [Concomitant]
     Indication: PROSTATIC DISORDER
  4. COMBIVENT [Concomitant]
     Indication: ASTHMA
  5. SYMBICORT [Concomitant]
     Indication: CHRONIC OBSTRUCTIVE PULMONARY DISEASE
     Dates: start: 20100101
  6. SPIRIVA [Suspect]
     Indication: ASTHMA
     Dosage: 18 MCG
     Route: 055
     Dates: start: 20101201
  7. PERCODAN-DEMI [Concomitant]
     Indication: MUSCULOSKELETAL DISCOMFORT
  8. NEXIUM [Concomitant]
     Indication: DYSPEPSIA
  9. COMBIVENT [Concomitant]
     Indication: CHRONIC OBSTRUCTIVE PULMONARY DISEASE
     Dates: start: 20050101
  10. OXYCONTIN [Suspect]
     Indication: MIGRAINE
  11. SYMBICORT [Concomitant]
     Indication: ASTHMA

REACTIONS (2)
  - CHOKING [None]
  - CONSTIPATION [None]
